FAERS Safety Report 4709044-3 (Version None)
Quarter: 2005Q3

REPORT INFORMATION
  Report Type: 
  Country: None (occurrence: None)
  Receive Date: 20050707
  Receipt Date: 20050624
  Transmission Date: 20060218
  Serious: Yes (Death)
  Sender: FDA-Public Use
  Company Number: 2005092593

PATIENT
  Age: 33 Year
  Sex: Male
  Weight: 139 kg

DRUGS (1)
  1. CELEBREX [Suspect]
     Indication: MUSCULOSKELETAL PAIN
     Dosage: 400 MG (200 MG, 2 IN 1 D), ORAL
     Route: 048
     Dates: start: 20040224, end: 20041123

REACTIONS (4)
  - AORTIC ATHEROSCLEROSIS [None]
  - BLOOD PRESSURE DECREASED [None]
  - HEART RATE DECREASED [None]
  - PULMONARY EMBOLISM [None]
